FAERS Safety Report 16055844 (Version 1)
Quarter: 2019Q1

REPORT INFORMATION
  Report Type: Spontaneous
  Country: US (occurrence: US)
  Receive Date: 20190208
  Receipt Date: 20190208
  Transmission Date: 20190418
  Serious: No
  Sender: FDA-Public Use
  Company Number: None

PATIENT
  Age: 84 Year
  Sex: Female

DRUGS (3)
  1. IBRANCE [Suspect]
     Active Substance: PALBOCICLIB
     Route: 048
     Dates: start: 201811
  2. XGEVA [Concomitant]
     Active Substance: DENOSUMAB
  3. MORPHINE [Concomitant]
     Active Substance: MORPHINE

REACTIONS (2)
  - Upper respiratory tract infection [None]
  - Fatigue [None]

NARRATIVE: CASE EVENT DATE: 20190208
